FAERS Safety Report 12959052 (Version 1)
Quarter: 2016Q4

REPORT INFORMATION
  Report Type: Spontaneous
  Country: US (occurrence: US)
  Receive Date: 20161121
  Receipt Date: 20161121
  Transmission Date: 20170207
  Serious: No
  Sender: FDA-Public Use
  Company Number: US-BAYER-2016-222060

PATIENT
  Age: 38 Year
  Sex: Male
  Weight: 83.9 kg

DRUGS (1)
  1. ALEVE [Suspect]
     Active Substance: NAPROXEN SODIUM
     Indication: PAIN
     Dosage: UNK
     Dates: start: 1997

REACTIONS (2)
  - Expired product administered [Unknown]
  - Overdose [Unknown]

NARRATIVE: CASE EVENT DATE: 20161118
